FAERS Safety Report 7792482-2 (Version None)
Quarter: 2011Q4

REPORT INFORMATION
  Report Type: 
  Country: None (occurrence: None)
  Receive Date: 20111003
  Receipt Date: 20110927
  Transmission Date: 20120403
  Serious: Yes (Death, Hospitalization, Congenital Anomaly, Other)
  Sender: FDA-Public Use
  Company Number: US-PFIZER INC-2011105818

PATIENT
  Sex: Male
  Weight: 1.5 kg

DRUGS (15)
  1. EFFEXOR [Suspect]
     Dosage: UNK
     Route: 064
  2. HYDROMORPHONE [Concomitant]
     Indication: PAIN
     Dosage: 2 MG, EVERY 4 HOURS
     Route: 064
     Dates: start: 20090901
  3. XYLOCAINE [Concomitant]
     Dosage: 1% SDV 2 ML VIAL
     Route: 064
     Dates: start: 20090901, end: 20091020
  4. GENTAMICIN [Concomitant]
     Indication: INFECTION
     Dosage: UNK
     Route: 064
  5. ZOLOFT [Suspect]
     Indication: DEPRESSED MOOD
     Dosage: 100 MG, UNK
     Route: 064
  6. ZOLPIDEM [Concomitant]
     Indication: SLEEP DISORDER
     Dosage: 10 MG, BED TIME
     Route: 064
     Dates: start: 20090901, end: 20091001
  7. PRENATAL VITAMINS [Concomitant]
     Dosage: DAILY ONE
     Route: 064
     Dates: start: 20090918, end: 20091020
  8. BUTORPHANOL [Concomitant]
     Indication: PAIN
     Dosage: 2 MG/ML VIAL,
     Route: 064
     Dates: start: 20091017
  9. CLINDAMYCIN [Concomitant]
     Indication: INFECTION
     Dosage: UNK
     Route: 064
  10. DOCUSATE [Concomitant]
     Indication: FAECES HARD
     Dosage: ONE CAPSULE AT BED TIME AS NEEDED
     Route: 064
     Dates: start: 20090901, end: 20091001
  11. CELESTONE [Concomitant]
     Dosage: 12 MG/ 2CC, UNK
     Route: 064
     Dates: start: 20090914
  12. FAMOTIDINE [Concomitant]
     Dosage: 20 MG, 2X/DAY
     Route: 064
     Dates: start: 20090926, end: 20091026
  13. ACETAMINOPHEN [Concomitant]
     Indication: HEADACHE
     Dosage: 325 MG, 2 TABLETS FOR EVERY THREE HOURS
     Route: 064
     Dates: start: 20090901, end: 20091001
  14. AMPICILLIN [Concomitant]
     Dosage: 500 MG, EVERY 6 HOURS
     Route: 064
     Dates: start: 20090905, end: 20090912
  15. OXYCODONE AND ACETAMINOPHEN [Concomitant]
     Dosage: 5/325 1 TABLET
     Route: 064
     Dates: start: 20091005, end: 20091022

REACTIONS (17)
  - TRICUSPID VALVE INCOMPETENCE [None]
  - PULMONARY HYPOPLASIA [None]
  - INTRAVENTRICULAR HAEMORRHAGE NEONATAL [None]
  - ATRIAL SEPTAL DEFECT [None]
  - BRADYCARDIA NEONATAL [None]
  - EXTREMITY CONTRACTURE [None]
  - KIDNEY MALFORMATION [None]
  - PNEUMOTHORAX [None]
  - APNOEA [None]
  - HYPOTENSION [None]
  - PULMONARY HYPERTENSION [None]
  - SEPSIS NEONATAL [None]
  - MATERNAL EXPOSURE DURING PREGNANCY [None]
  - NEONATAL RESPIRATORY DISTRESS SYNDROME [None]
  - PATENT DUCTUS ARTERIOSUS [None]
  - PERIPHERAL CIRCULATORY FAILURE [None]
  - RETINOPATHY OF PREMATURITY [None]
